FAERS Safety Report 6033242-2 (Version None)
Quarter: 2009Q1

REPORT INFORMATION
  Report Type: 
  Country: None (occurrence: None)
  Receive Date: 20090109
  Receipt Date: 20081230
  Transmission Date: 20090719
  Serious: Yes (Other)
  Sender: FDA-Public Use
  Company Number: AU-PFIZER INC-2008151186

PATIENT

DRUGS (5)
  1. CHAMPIX [Suspect]
     Dosage: UNK
     Dates: start: 20081104, end: 20081125
  2. LEVLEN 28 [Concomitant]
  3. ACETAMINOPHEN [Concomitant]
  4. VENTOLIN [Concomitant]
  5. FLUTICASONE PROPIONATE [Concomitant]

REACTIONS (1)
  - ANGER [None]
